FAERS Safety Report 8411434-2 (Version None)
Quarter: 2012Q2

REPORT INFORMATION
  Report Type: 
  Country: None (occurrence: None)
  Receive Date: 20120605
  Receipt Date: 20120507
  Transmission Date: 20120825
  Serious: No
  Sender: FDA-Public Use
  Company Number: US-AMGEN-USASP2012029070

PATIENT
  Sex: Female

DRUGS (2)
  1. ENBREL [Suspect]
     Indication: RHEUMATOID ARTHRITIS
     Dosage: 50 MG, QWK
     Dates: start: 20120506
  2. TREXALL [Concomitant]
     Dosage: 4 MG, QWK
     Dates: start: 20110101

REACTIONS (3)
  - WALKING AID USER [None]
  - SLEEP APNOEA SYNDROME [None]
  - DRUG INEFFECTIVE [None]
